FAERS Safety Report 25265468 (Version 1)
Quarter: 2025Q2

REPORT INFORMATION
  Report Type: Spontaneous
  Country: US (occurrence: US)
  Receive Date: 20250502
  Receipt Date: 20250502
  Transmission Date: 20250716
  Serious: Yes (Hospitalization)
  Sender: PFIZER
  Company Number: US-PFIZER INC-202500091778

PATIENT
  Age: 61 Year
  Sex: Female

DRUGS (20)
  1. IBRANCE [Suspect]
     Active Substance: PALBOCICLIB
     Route: 048
     Dates: start: 20250403
  2. LOSARTAN POTASSIUM [Concomitant]
     Active Substance: LOSARTAN POTASSIUM
  3. ACETAMINOPHEN [Concomitant]
     Active Substance: ACETAMINOPHEN
  4. VENTOLIN HFA [Concomitant]
     Active Substance: ALBUTEROL SULFATE
  5. LAC-HYDRIN [Concomitant]
     Active Substance: AMMONIUM LACTATE
  6. ANASTROZOLE [Concomitant]
     Active Substance: ANASTROZOLE
  7. ELIQUIS [Concomitant]
     Active Substance: APIXABAN
  8. ATORVASTATIN [Concomitant]
     Active Substance: ATORVASTATIN
  9. DILTIAZEM [Concomitant]
     Active Substance: DILTIAZEM
  10. EZETIMIBE [Concomitant]
     Active Substance: EZETIMIBE
  11. ADVAIR HFA [Concomitant]
     Active Substance: FLUTICASONE PROPIONATE\SALMETEROL XINAFOATE
  12. FUROSEMIDE [Concomitant]
     Active Substance: FUROSEMIDE
  13. GABAPENTIN [Concomitant]
     Active Substance: GABAPENTIN
  14. JARDIANCE [Concomitant]
     Active Substance: EMPAGLIFLOZIN
  15. METFORMIN HYDROCHLORIDE [Concomitant]
     Active Substance: METFORMIN HYDROCHLORIDE
  16. KLOR-CON M10 [Concomitant]
     Active Substance: POTASSIUM CHLORIDE
  17. VITAMIN D2 [Concomitant]
     Active Substance: ERGOCALCIFEROL
  18. NORCO [Concomitant]
     Active Substance: ACETAMINOPHEN\HYDROCODONE BITARTRATE
  19. AMMONIUM LACTATE [Concomitant]
     Active Substance: AMMONIUM LACTATE
  20. NYSTOP [Concomitant]
     Active Substance: NYSTATIN

REACTIONS (2)
  - Hypervolaemia [Unknown]
  - Limb discomfort [Unknown]
